FAERS Safety Report 18823271 (Version 1)
Quarter: 2021Q1

REPORT INFORMATION
  Report Type: Report from Study
  Country: None (occurrence: NL)
  Receive Date: 20210201
  Receipt Date: 20210201
  Transmission Date: 20210419
  Serious: Yes (Hospitalization)
  Sender: FDA-Public Use
  Company Number: NL-ABBVIE-21K-114-3751486-00

PATIENT
  Sex: Male

DRUGS (11)
  1. DUODOPA [Suspect]
     Active Substance: CARBIDOPA\LEVODOPA
     Dosage: END: 2.0 ML; CND: 2.4 ML/H
     Route: 050
  2. DUODOPA [Suspect]
     Active Substance: CARBIDOPA\LEVODOPA
     Dosage: MD: 7.0 ML; CD: 3.8 ML/H; ED: 2.0 ML; END: 2.0 ML; CND: 2.4 ML/H/15/9 PEG?J TUBE
     Route: 050
  3. MACROGOL [Concomitant]
     Active Substance: POLYETHYLENE GLYCOLS
     Indication: PRODUCT USED FOR UNKNOWN INDICATION
  4. CLOZAPINE. [Concomitant]
     Active Substance: CLOZAPINE
     Indication: PRODUCT USED FOR UNKNOWN INDICATION
  5. DUODOPA [Suspect]
     Active Substance: CARBIDOPA\LEVODOPA
     Dosage: MD: 7.0 ML; CD: 3.2 ML/H; ED: 2.0 ML
     Route: 050
  6. DUODOPA [Suspect]
     Active Substance: CARBIDOPA\LEVODOPA
     Indication: PARKINSON^S DISEASE
     Dosage: MD: 7.0 ML; CD: 3.2 ML/H; ED: 2.0 ML; CND: 1.6 ML/H
     Route: 050
     Dates: start: 20200911
  7. CLOZAPINE. [Concomitant]
     Active Substance: CLOZAPINE
     Dosage: INCREASED.
  8. DUODOPA [Suspect]
     Active Substance: CARBIDOPA\LEVODOPA
     Dosage: END: 2.0 ML; CND: 1.8 ML/H
     Route: 050
  9. DUODOPA [Suspect]
     Active Substance: CARBIDOPA\LEVODOPA
     Dosage: MD: 7.0 ML; CD: 3.4 ML/H; ED: 2.0 ML; END: 2.0 ML; CND: 2.0 ML/H
     Route: 050
  10. DUODOPA [Suspect]
     Active Substance: CARBIDOPA\LEVODOPA
     Dosage: MD: 7.0 ML; CD: 3.6 ML/H; ED: 2.0 ML; END: 2.0 ML; CND: 2.2 ML/H
     Route: 050
  11. DUODOPA [Suspect]
     Active Substance: CARBIDOPA\LEVODOPA
     Dosage: MD: 7.0 ML; CD: 3.3 ML/H; ED: 2.0 ML; END: 1.0 ML; CND: 1.8 ML/H
     Route: 050

REACTIONS (15)
  - Obsessive-compulsive disorder [Unknown]
  - Salivary hypersecretion [Unknown]
  - Urinary retention [Not Recovered/Not Resolved]
  - Speech disorder [Unknown]
  - Memory impairment [Unknown]
  - Freezing phenomenon [Unknown]
  - On and off phenomenon [Unknown]
  - Anxiety [Unknown]
  - Disorientation [Unknown]
  - Restlessness [Unknown]
  - Stress [Unknown]
  - Gait disturbance [Unknown]
  - Tremor [Unknown]
  - Dyskinesia [Unknown]
  - Hallucination [Unknown]
